FAERS Safety Report 18949204 (Version 1)
Quarter: 2021Q1

REPORT INFORMATION
  Report Type: Spontaneous
  Country: US (occurrence: US)
  Receive Date: 20210227
  Receipt Date: 20210227
  Transmission Date: 20210420
  Serious: No
  Sender: FDA-Public Use
  Company Number: US-ROCHE-2649586

PATIENT

DRUGS (2)
  1. AIMOVIG [Concomitant]
     Active Substance: ERENUMAB-AOOE
  2. XOLAIR [Suspect]
     Active Substance: OMALIZUMAB
     Indication: ASTHMA
     Route: 065

REACTIONS (4)
  - Infection [Unknown]
  - Photosensitivity reaction [Unknown]
  - Immunosuppression [Unknown]
  - Eczema [Unknown]
